FAERS Safety Report 5167585-1 (Version None)
Quarter: 2006Q4

REPORT INFORMATION
  Report Type: 
  Country: None (occurrence: None)
  Receive Date: 20060830
  Receipt Date: 20060517
  Transmission Date: 20070319
  Serious: No
  Sender: FDA-Public Use
  Company Number: 225265

PATIENT
  Sex: Male

DRUGS (1)
  1. XOLAIR [Suspect]
     Indication: DRUG USE FOR UNKNOWN INDICATION
     Dosage: UNK, UNK, UNK

REACTIONS (1)
  - SPERMATOZOA PROGRESSIVE MOTILITY DECREASED [None]
